FAERS Safety Report 21146775 (Version 1)
Quarter: 2022Q3

REPORT INFORMATION
  Report Type: Spontaneous
  Country: NO (occurrence: NO)
  Receive Date: 20220729
  Receipt Date: 20220729
  Transmission Date: 20221027
  Serious: Yes (Other)
  Sender: FDA-Public Use
  Company Number: NO-Accord-260227

PATIENT
  Age: 47 Year
  Sex: Female

DRUGS (20)
  1. DOXORUBICIN HYDROCHLORIDE [Suspect]
     Active Substance: DOXORUBICIN HYDROCHLORIDE
     Indication: Product used for unknown indication
     Route: 065
     Dates: start: 20190501, end: 20210801
  2. BEVACIZUMAB [Suspect]
     Active Substance: BEVACIZUMAB
     Indication: Product used for unknown indication
     Route: 065
     Dates: start: 20190426
  3. OXYCODONE HYDROCHLORIDE [Suspect]
     Active Substance: OXYCODONE HYDROCHLORIDE
     Indication: Product used for unknown indication
     Route: 065
     Dates: start: 20190501, end: 20210801
  4. AVASTIN [Suspect]
     Active Substance: BEVACIZUMAB
     Indication: Product used for unknown indication
     Route: 065
     Dates: start: 20190501, end: 20210801
  5. TAXOL [Suspect]
     Active Substance: PACLITAXEL
     Indication: Product used for unknown indication
     Route: 065
     Dates: start: 20190501, end: 20210801
  6. NALOXONE HYDROCHLORIDE\OXYCODONE HYDROCHLORIDE [Suspect]
     Active Substance: NALOXONE HYDROCHLORIDE\OXYCODONE HYDROCHLORIDE
     Indication: Product used for unknown indication
     Route: 065
     Dates: start: 20190501, end: 20210801
  7. DOCETAXEL [Suspect]
     Active Substance: DOCETAXEL
     Indication: Product used for unknown indication
     Route: 066
     Dates: start: 20190501, end: 20210801
  8. CARBOPLATIN [Suspect]
     Active Substance: CARBOPLATIN
     Indication: Product used for unknown indication
     Route: 065
     Dates: start: 20190501, end: 20210801
  9. PANTOPRAZOLE SODIUM [Concomitant]
     Active Substance: PANTOPRAZOLE SODIUM
  10. MOVICOL [Concomitant]
     Active Substance: POLYETHYLENE GLYCOL 3350\POTASSIUM CHLORIDE\SODIUM BICARBONATE\SODIUM CHLORIDE
  11. ESOMEPRAZOLE [Concomitant]
     Active Substance: ESOMEPRAZOLE
  12. NABIXIMOLS [Concomitant]
     Active Substance: NABIXIMOLS
  13. PANTOPRAZOLE [Concomitant]
     Active Substance: PANTOPRAZOLE
  14. CIPROFLOXACIN [Concomitant]
     Active Substance: CIPROFLOXACIN
  15. METOCLOPRAMIDE HYDROCHLORIDE [Concomitant]
     Active Substance: METOCLOPRAMIDE HYDROCHLORIDE
  16. FLAGYL [Concomitant]
     Active Substance: METRONIDAZOLE\METRONIDAZOLE HYDROCHLORIDE
  17. DEXAMETHASONE [Concomitant]
     Active Substance: DEXAMETHASONE
  18. ENOXAPARIN [Concomitant]
     Active Substance: ENOXAPARIN
  19. PYRIDOXINE [Concomitant]
     Active Substance: PYRIDOXINE
  20. OLAPARIB [Concomitant]
     Active Substance: OLAPARIB

REACTIONS (18)
  - Cholecystitis [Unknown]
  - Insomnia [Unknown]
  - Headache [Unknown]
  - Dyspnoea [Unknown]
  - Pruritus [Unknown]
  - Metastases to liver [Unknown]
  - Back pain [Unknown]
  - Contusion [Unknown]
  - Dizziness [Unknown]
  - Balance disorder [Unknown]
  - Rash [Unknown]
  - Mobility decreased [Unknown]
  - Hot flush [Unknown]
  - Decreased appetite [Unknown]
  - Abdominal pain [Unknown]
  - Hyperhidrosis [Unknown]
  - Bowel movement irregularity [Unknown]
  - Deafness [Unknown]

NARRATIVE: CASE EVENT DATE: 20190601
